FAERS Safety Report 15214961 (Version 1)
Quarter: 2018Q3

REPORT INFORMATION
  Report Type: Spontaneous
  Country: CA (occurrence: CA)
  Receive Date: 20180730
  Receipt Date: 20180730
  Transmission Date: 20181010
  Serious: Yes (Disabling)
  Sender: FDA-Public Use
  Company Number: CA-JNJFOC-20180732068

PATIENT
  Age: 58 Year
  Sex: Female
  Weight: 78.47 kg

DRUGS (4)
  1. INVOKANA [Suspect]
     Active Substance: CANAGLIFLOZIN
     Indication: TYPE 2 DIABETES MELLITUS
     Route: 048
  2. DIAMICRON [Concomitant]
     Active Substance: GLICLAZIDE
     Route: 065
  3. ACETYLSALICYLIC ACID [Concomitant]
     Active Substance: ASPIRIN
     Route: 065
  4. METFORMIN [Concomitant]
     Active Substance: METFORMIN HYDROCHLORIDE
     Route: 065

REACTIONS (7)
  - Impaired work ability [Recovering/Resolving]
  - Neuralgia [Recovering/Resolving]
  - Gait disturbance [Recovering/Resolving]
  - Spinal cord oedema [Recovering/Resolving]
  - Back pain [Recovering/Resolving]
  - Dysstasia [Recovering/Resolving]
  - Sciatica [Recovering/Resolving]
